FAERS Safety Report 9726352 (Version 1)
Quarter: 2013Q4

REPORT INFORMATION
  Report Type: Spontaneous
  Country: CA (occurrence: None)
  Receive Date: 20131202
  Receipt Date: 20131202
  Transmission Date: 20140711
  Serious: Yes (Other)
  Sender: FDA-Public Use
  Company Number: None

PATIENT
  Age: 69 Year
  Sex: Male
  Weight: 76 kg

DRUGS (1)
  1. SUBLINOX (ZOLPIDEM) [Suspect]
     Indication: INSOMNIA
     Dosage: QHS
     Dates: start: 20130930, end: 20131129

REACTIONS (3)
  - Abnormal behaviour [None]
  - Hypomania [None]
  - Aggression [None]
